FAERS Safety Report 13672649 (Version 2)
Quarter: 2017Q2

REPORT INFORMATION
  Report Type: Spontaneous
  Country: US (occurrence: US)
  Receive Date: 20170621
  Receipt Date: 20170628
  Transmission Date: 20170830
  Serious: Yes (Hospitalization)
  Sender: FDA-Public Use
  Company Number: US-CONCORDIA PHARMACEUTICALS INC.-GSH201706-003595

PATIENT
  Age: 41 Year
  Sex: Male

DRUGS (1)
  1. KAYEXALATE [Suspect]
     Active Substance: SODIUM POLYSTYRENE SULFONATE
     Indication: HYPERKALAEMIA
     Route: 048

REACTIONS (4)
  - Pneumonia [Unknown]
  - Histology abnormal [Unknown]
  - Aspiration [Unknown]
  - Bronchitis [Unknown]
